FAERS Safety Report 19291665 (Version 1)
Quarter: 2021Q2

REPORT INFORMATION
  Report Type: Other
  Country: CN (occurrence: CN)
  Receive Date: 20210523
  Receipt Date: 20210523
  Transmission Date: 20210717
  Serious: Yes (Other)
  Sender: FDA-Public Use
  Company Number: CN-ROCHE-2831731

PATIENT
  Sex: Female

DRUGS (5)
  1. HUANG QI (CHINESE HERBAL MEDICINE) [Suspect]
     Active Substance: HERBALS
     Indication: HER2 POSITIVE BREAST CANCER
     Route: 065
  2. LING ZHI [HERBALS] [Suspect]
     Active Substance: HERBALS
     Indication: HER2 POSITIVE BREAST CANCER
     Route: 065
  3. TRASTUZUMAB. [Suspect]
     Active Substance: TRASTUZUMAB
     Indication: HER2 POSITIVE BREAST CANCER
     Route: 042
  4. TRASTUZUMAB. [Suspect]
     Active Substance: TRASTUZUMAB
     Dosage: 3 WEEKS WAS 1 CYCLE OF TREATMENT, A TOTAL OF 6 CYCLES
     Route: 042
  5. DANG SHEN (CODONOPSIS PILOSULA ROOT\HERBALS) [Suspect]
     Active Substance: CODONOPSIS PILOSULA ROOT\HERBALS
     Indication: HER2 POSITIVE BREAST CANCER
     Route: 065

REACTIONS (1)
  - Myelosuppression [Unknown]
